FAERS Safety Report 10685028 (Version 1)
Quarter: 2014Q4

REPORT INFORMATION
  Report Type: Spontaneous
  Country: IT (occurrence: None)
  Receive Date: 20141229
  Receipt Date: 20141229
  Transmission Date: 20150529
  Serious: Yes (Other)
  Sender: FDA-Public Use
  Company Number: KAD201412-001692

PATIENT
  Age: 67 Year
  Sex: Male

DRUGS (4)
  1. RIBAVIRIN (RIBAVIRIN) [Suspect]
     Active Substance: RIBAVIRIN
     Indication: HEPATIC CIRRHOSIS
     Route: 048
     Dates: start: 20131104, end: 20140311
  2. PEGINTERFERON ALFA-2B [Suspect]
     Active Substance: PEGINTERFERON ALFA-2B
     Indication: HEPATIC CIRRHOSIS
     Dosage: 120 MCG ONCE WEEKLY
     Route: 058
     Dates: start: 20131104, end: 20140311
  3. INSULIN [Concomitant]
     Active Substance: INSULIN NOS
  4. VICTRELIS [Suspect]
     Active Substance: BOCEPREVIR
     Indication: HEPATIC CIRRHOSIS
     Route: 048
     Dates: start: 20131201, end: 20140311

REACTIONS (3)
  - Ascites [None]
  - Treatment failure [None]
  - Gravitational oedema [None]

NARRATIVE: CASE EVENT DATE: 20140311
